FAERS Safety Report 8337582-3 (Version None)
Quarter: 2012Q2

REPORT INFORMATION
  Report Type: 
  Country: None (occurrence: None)
  Receive Date: 20120504
  Receipt Date: 20120424
  Transmission Date: 20120825
  Serious: Yes (Other)
  Sender: FDA-Public Use
  Company Number: US-ROCHE-1063445

PATIENT
  Age: 53 Year
  Sex: Female
  Weight: 69.916 kg

DRUGS (2)
  1. CARBOPLATIN [Concomitant]
     Indication: NON-SMALL CELL LUNG CANCER
     Route: 042
  2. AVASTIN [Suspect]
     Indication: NON-SMALL CELL LUNG CANCER
     Route: 042
     Dates: start: 20120118, end: 20120321

REACTIONS (4)
  - FEELING COLD [None]
  - ASTHENIA [None]
  - FLATULENCE [None]
  - HOT FLUSH [None]
